FAERS Safety Report 24630133 (Version 3)
Quarter: 2024Q4

REPORT INFORMATION
  Report Type: Spontaneous
  Country: NZ (occurrence: NZ)
  Receive Date: 20241118
  Receipt Date: 20241227
  Transmission Date: 20250115
  Serious: Yes (Hospitalization, Other)
  Sender: CSL BEHRING
  Company Number: NZ-BEH-2024185331

PATIENT
  Age: 64 Year
  Sex: Male
  Weight: 84 kg

DRUGS (10)
  1. PRIVIGEN [Suspect]
     Active Substance: HUMAN IMMUNOGLOBULIN G
     Indication: Hypogammaglobulinaemia
     Dosage: 10 G
     Route: 042
     Dates: start: 20241106, end: 20241113
  2. PRIVIGEN [Suspect]
     Active Substance: HUMAN IMMUNOGLOBULIN G
     Indication: Haematological malignancy
     Dosage: {35, 20 MG-200 ML
     Route: 042
     Dates: start: 20241106, end: 20241106
  3. OXYCODONE HYDROCHLORIDE [Concomitant]
     Active Substance: OXYCODONE HYDROCHLORIDE
     Indication: Pain
     Dosage: 5 MG, PRN (OVER 3 MONTHS)
     Route: 048
  4. VALACYCLOVIR [Concomitant]
     Active Substance: VALACYCLOVIR HYDROCHLORIDE
     Indication: Prophylaxis
     Dosage: 500, QD (OVER 3 MONTHS)
     Route: 048
  5. COTRIMOXAZOLE [Concomitant]
     Active Substance: SULFAMETHOXAZOLE\TRIMETHOPRIM
     Indication: Prophylaxis
     Dosage: 480 QD (OVER 3 MONTHS)
     Route: 048
  6. GABAPENTIN [Concomitant]
     Active Substance: GABAPENTIN
     Indication: Pain
     Dosage: 300MG DAILY (FREQUENCY: TID) OVER 3 MONTHS
     Route: 048
  7. AUGMENTIN [Concomitant]
     Active Substance: AMOXICILLIN\CLAVULANATE POTASSIUM
     Indication: Pneumonia
     Dosage: 1.2 G, TID
     Route: 048
  8. AZITHROMYCIN [Concomitant]
     Active Substance: AZITHROMYCIN
     Indication: Pneumonia
     Dosage: 500 MG, QD
     Route: 048
     Dates: start: 20241104
  9. ACETAMINOPHEN [Concomitant]
     Active Substance: ACETAMINOPHEN
     Indication: Pain
     Dosage: 1 G, QID (OVER 3 MONTHS)
     Route: 048
  10. OXYCODONE [Concomitant]
     Active Substance: OXYCODONE
     Indication: Pain
     Dosage: 20 G, BID (OVER 3 MONTHS)
     Route: 048

REACTIONS (11)
  - Hypertension [Recovered/Resolved]
  - Dyspnoea [Recovered/Resolved]
  - Chills [Recovered/Resolved]
  - Chest discomfort [Recovered/Resolved]
  - Wheezing [Recovered/Resolved]
  - Crepitations [Recovered/Resolved]
  - Upper respiratory tract infection [Recovered/Resolved]
  - Hypervolaemia [Recovered/Resolved]
  - Pneumonia [Unknown]
  - Aortic valve incompetence [Unknown]
  - Extrasystoles [Unknown]

NARRATIVE: CASE EVENT DATE: 20241106
